FAERS Safety Report 6655624-8 (Version None)
Quarter: 2010Q1

REPORT INFORMATION
  Report Type: 
  Country: None (occurrence: None)
  Receive Date: 20100329
  Receipt Date: 20100317
  Transmission Date: 20100710
  Serious: Yes (Hospitalization)
  Sender: FDA-Public Use
  Company Number: IT-PFIZER INC-2010034070

PATIENT
  Age: 62 Year
  Sex: Male

DRUGS (5)
  1. FARMORUBICINA [Suspect]
     Indication: GASTRIC CANCER STAGE IV
     Dosage: 80.5 MG TOTAL
     Route: 042
     Dates: start: 20100125, end: 20100125
  2. CISPLATIN [Suspect]
     Indication: GASTRIC CANCER STAGE IV
     Dosage: 100.9 MG TOTAL
     Route: 042
     Dates: start: 20100125, end: 20100125
  3. DEXAMETHASONE [Concomitant]
     Dosage: 8 MG
     Route: 042
     Dates: start: 20100125, end: 20100125
  4. ZOFRAN [Concomitant]
     Dosage: 8 MG
     Route: 042
     Dates: start: 20100125, end: 20100125
  5. ZANTAC [Concomitant]
     Dosage: 100 MG
     Route: 042
     Dates: start: 20100125, end: 20100125

REACTIONS (1)
  - MYOCARDIAL INFARCTION [None]
